FAERS Safety Report 6447620-0 (Version None)
Quarter: 2009Q4

REPORT INFORMATION
  Report Type: 
  Country: None (occurrence: None)
  Receive Date: 20091119
  Receipt Date: 20091030
  Transmission Date: 20100525
  Serious: Yes (Hospitalization)
  Sender: FDA-Public Use
  Company Number: US-AMGEN-KDL368935

PATIENT
  Sex: Female
  Weight: 104 kg

DRUGS (13)
  1. ENBREL [Suspect]
     Indication: RHEUMATOID ARTHRITIS
     Route: 058
     Dates: start: 20070926
  2. METHOTREXATE [Concomitant]
     Dates: start: 20070314
  3. LEVOXYL [Concomitant]
     Dates: start: 20070212
  4. FOSAMAX [Concomitant]
     Dates: start: 20070614
  5. BENICAR [Concomitant]
     Dates: start: 20080123
  6. PRILOSEC [Concomitant]
     Dates: start: 20080123
  7. PLAQUENIL [Concomitant]
     Dates: start: 20080123
  8. METFORMIN HCL [Concomitant]
     Dates: start: 20080123
  9. PRAVASTATIN [Concomitant]
     Dates: start: 20090527
  10. LOVAZA [Concomitant]
     Dates: start: 20090527
  11. LEUCOVORIN CALCIUM [Concomitant]
     Dates: start: 20070314
  12. MULTI-VITAMINS [Concomitant]
     Dates: start: 20070212
  13. CALCIUM WITH VITAMIN D [Concomitant]
     Dates: start: 20070212

REACTIONS (3)
  - DIVERTICULITIS [None]
  - NORMOCHROMIC NORMOCYTIC ANAEMIA [None]
  - PELVIC ABSCESS [None]
